FAERS Safety Report 8248627-3 (Version None)
Quarter: 2012Q1

REPORT INFORMATION
  Report Type: 
  Country: None (occurrence: None)
  Receive Date: 20120330
  Receipt Date: 20110827
  Transmission Date: 20120608
  Serious: Yes (Other)
  Sender: FDA-Public Use
  Company Number: PHHY2011AR78834

PATIENT
  Age: 16 Year
  Sex: Male

DRUGS (3)
  1. CARBAMAZEPINE [Suspect]
     Indication: CONVULSION
     Dosage: 15 MG/KG/DAY
  2. VALPROIC ACID [Suspect]
     Dosage: 30 MG/KG/DAY
  3. VALPROIC ACID [Suspect]
     Indication: CONVULSION
     Dosage: 25 MG/KG/DAY

REACTIONS (4)
  - LEARNING DISORDER [None]
  - PETIT MAL EPILEPSY [None]
  - MYOCLONIC EPILEPSY [None]
  - GAIT DISTURBANCE [None]
